FAERS Safety Report 4438143-9 (Version None)
Quarter: 2004Q3

REPORT INFORMATION
  Report Type: 
  Country: None (occurrence: None)
  Receive Date: 20040831
  Receipt Date: 20040601
  Transmission Date: 20050211
  Serious: No
  Sender: FDA-Public Use
  Company Number: US-GLAXOSMITHKLINE-A0512893A

PATIENT
  Age: 37 Year
  Sex: Female

DRUGS (3)
  1. WELLBUTRIN [Suspect]
     Indication: DEPRESSION
     Dosage: 150MG PER DAY
     Route: 048
     Dates: start: 20040531, end: 20040601
  2. ADVIL [Concomitant]
  3. KLONOPIN [Concomitant]

REACTIONS (4)
  - ANXIETY [None]
  - FEELING ABNORMAL [None]
  - MOOD SWINGS [None]
  - NEGATIVE THOUGHTS [None]
